FAERS Safety Report 20077044 (Version 1)
Quarter: 2021Q4

REPORT INFORMATION
  Report Type: Spontaneous
  Country: JP (occurrence: JP)
  Receive Date: 20211116
  Receipt Date: 20211116
  Transmission Date: 20220303
  Serious: Yes (Other)
  Sender: FDA-Public Use
  Company Number: JP-Merck Healthcare KGaA-9277945

PATIENT
  Age: 58 Year
  Sex: Male

DRUGS (4)
  1. ERBITUX [Suspect]
     Active Substance: CETUXIMAB
     Indication: Oropharyngeal cancer
     Dosage: 400 MG/M2, UNK
     Route: 041
     Dates: start: 202003, end: 202003
  2. ERBITUX [Suspect]
     Active Substance: CETUXIMAB
     Dosage: 250 MG/M2, WEEKLY (1/W)
     Route: 041
     Dates: start: 2020
  3. CARBOPLATIN [Suspect]
     Active Substance: CARBOPLATIN
     Indication: Oropharyngeal cancer
     Dosage: AUC (AREA UNDER THE CURVE) 1.5.
     Route: 041
     Dates: start: 202003
  4. PACLITAXEL [Suspect]
     Active Substance: PACLITAXEL
     Indication: Oropharyngeal cancer
     Dosage: 80 MG, WEEKLY (1/W)
     Route: 041
     Dates: start: 202003

REACTIONS (3)
  - Anaemia [Unknown]
  - Neutropenia [Not Recovered/Not Resolved]
  - Leukopenia [Unknown]
